FAERS Safety Report 4924556-5 (Version None)
Quarter: 2006Q1

REPORT INFORMATION
  Report Type: 
  Country: None (occurrence: None)
  Receive Date: 20060222
  Receipt Date: 20060210
  Transmission Date: 20060701
  Serious: Yes (Life-Threatening)
  Sender: FDA-Public Use
  Company Number: 2006020661

PATIENT
  Age: 65 Year
  Sex: Female

DRUGS (14)
  1. FLUCONAZOLE [Suspect]
     Indication: DIARRHOEA INFECTIOUS
     Dosage: 50 MG (50 MG),  ORAL
     Route: 048
     Dates: start: 20060110, end: 20060113
  2. FLUCONAZOLE [Suspect]
     Indication: VOMITING
     Dosage: 50 MG (50 MG),  ORAL
     Route: 048
     Dates: start: 20060110, end: 20060113
  3. METRONIDAZOLE [Suspect]
     Indication: DIARRHOEA INFECTIOUS
     Dosage: 1000 MG (500 MG, 2 IN 1 D), ORAL
     Route: 048
     Dates: start: 20060106, end: 20060110
  4. DOMPERIDONE (DOMPERIDONE) [Suspect]
     Indication: NAUSEA
     Dosage: 60 MG (20 MG, 3 IN 1 D), ORAL
     Route: 048
     Dates: end: 20060113
  5. PREDNISOLONE [Suspect]
     Indication: BRONCHITIS ACUTE
     Dosage: 40 MG (40 MG), ORAL
     Route: 048
     Dates: start: 20051228, end: 20060102
  6. OFLOXACIN [Suspect]
     Indication: DIARRHOEA INFECTIOUS
     Dosage: 400 MG (200 MG, 2 IN 1 D), ORAL
     Route: 048
     Dates: start: 20060105, end: 20060112
  7. KETEK [Suspect]
     Indication: BRONCHITIS ACUTE
     Dosage: 800 MG (800 MG), ORAL
     Route: 048
     Dates: start: 20051228, end: 20060104
  8. SINEMET [Concomitant]
  9. AMLODIPINE [Concomitant]
  10. NEXIUM [Concomitant]
  11. IMOVANE (ZOPICLONE) [Concomitant]
  12. FORLAX (MACROGOL) [Concomitant]
  13. SMECTITE (SMECTITE) [Concomitant]
  14. POTASSIUM CHLORIDE [Concomitant]

REACTIONS (13)
  - BRONCHITIS ACUTE [None]
  - CANDIDIASIS [None]
  - DEPRESSED LEVEL OF CONSCIOUSNESS [None]
  - DIARRHOEA [None]
  - FUNGUS STOOL IDENTIFIED [None]
  - GRAND MAL CONVULSION [None]
  - HYPOKALAEMIA [None]
  - MOTOR DYSFUNCTION [None]
  - MYDRIASIS [None]
  - PUPILLARY REFLEX IMPAIRED [None]
  - PYREXIA [None]
  - SEPSIS [None]
  - STAPHYLOCOCCAL INFECTION [None]
